FAERS Safety Report 16508535 (Version 1)
Quarter: 2019Q3

REPORT INFORMATION
  Report Type: Spontaneous
  Country: GB (occurrence: GB)
  Receive Date: 20190701
  Receipt Date: 20190701
  Transmission Date: 20191004
  Serious: Yes (Other)
  Sender: FDA-Public Use
  Company Number: GB-ALLERGAN-1926725US

PATIENT
  Sex: Female
  Weight: 75 kg

DRUGS (2)
  1. FML [Suspect]
     Active Substance: FLUOROMETHOLONE
     Indication: SWELLING OF EYELID
     Dosage: 2 GTT, QD
     Route: 047
     Dates: start: 20180416, end: 20180419
  2. EVENING PRIMROSE OIL [Concomitant]
     Active Substance: EVENING PRIMROSE OIL\HERBALS

REACTIONS (2)
  - Epigastric discomfort [Recovered/Resolved]
  - Vagus nerve disorder [Recovered/Resolved]

NARRATIVE: CASE EVENT DATE: 20180417
